FAERS Safety Report 9279005 (Version 2)
Quarter: 2013Q2

REPORT INFORMATION
  Report Type: Spontaneous
  Country: RO (occurrence: RO)
  Receive Date: 20130508
  Receipt Date: 20130510
  Transmission Date: 20140414
  Serious: Yes (Other)
  Sender: FDA-Public Use
  Company Number: RO-VIIV HEALTHCARE LIMITED-B0889813A

PATIENT
  Age: 24 Year
  Sex: Female

DRUGS (5)
  1. LAMIVUDINE-HIV [Suspect]
     Indication: HIV INFECTION
     Dosage: 300MG PER DAY
     Route: 065
  2. RALTEGRAVIR [Suspect]
     Indication: HIV INFECTION
     Dosage: 800MG TWICE PER DAY
  3. DARUNAVIR [Suspect]
     Indication: HIV INFECTION
     Dosage: 1200MG PER DAY
     Route: 065
  4. RITONAVIR [Suspect]
     Indication: HIV INFECTION
     Dosage: 200MG PER DAY
     Route: 065
  5. ENFUVIRTIDE [Suspect]
     Indication: HIV INFECTION
     Route: 065

REACTIONS (3)
  - Convulsion [Unknown]
  - Immune reconstitution inflammatory syndrome [Unknown]
  - Treatment noncompliance [Unknown]
